FAERS Safety Report 7251340 (Version 2)
Quarter: 2012Q4

REPORT INFORMATION
  Report Type: Spontaneous
  Country: TR (occurrence: TR)
  Receive Date: 20100121
  Receipt Date: 20121218
  Transmission Date: 20130627
  Serious: Yes (Hospitalization)
  Sender: FDA-Public Use
  Company Number: B0627602A

PATIENT
  Age: 30 Year
  Sex: Male

DRUGS (3)
  1. LAMOTRIGINE [Suspect]
     Indication: STATUS EPILEPTICUS
     Dosage: Alternate days
  2. VALPROIC ACID (VALPROIC ACID) [Suspect]
     Indication: STATUS EPILEPTICUS
     Dosage: 40MGKD per day
     Route: 042
  3. VALPROIC ACID (VALPROIC ACID) [Suspect]
     Indication: STATUS EPILEPTICUS
     Dosage: 1000MGK per day
     Route: 048

REACTIONS (3)
  - Psychotic disorder [Unknown]
  - Psychotic behaviour [Unknown]
  - Condition aggravated [Unknown]
